FAERS Safety Report 8389854 (Version 3)
Quarter: 2019Q2

REPORT INFORMATION
  Report Type: Report from Study
  Country: CA (occurrence: CA)
  Receive Date: 20120203
  Receipt Date: 20190422
  Transmission Date: 20190711
  Serious: Yes (Life-Threatening, Hospitalization)
  Sender: FDA-Public Use
  Company Number: CA-PFIZER INC-2011214055

PATIENT
  Age: 16 Year
  Sex: Male
  Weight: 56.5 kg

DRUGS (9)
  1. BENADRYL [Suspect]
     Active Substance: DIPHENHYDRAMINE HYDROCHLORIDE
     Dosage: 1200 MG, (48 TABLETS OF 25 MG) SINGLE
     Route: 048
     Dates: start: 20110911, end: 20110911
  2. PHENYLEPHRINE [Suspect]
     Active Substance: PHENYLEPHRINE\PHENYLEPHRINE HYDROCHLORIDE
     Dosage: 100 MG, (20 TABLETS OF 5 MG) SINGLE
     Route: 048
     Dates: start: 20110911, end: 20110911
  3. ADVIL [Suspect]
     Active Substance: IBUPROFEN
     Dosage: 3000 MG, (30 TABLETS OF 100 MG) SINGLE
     Route: 048
     Dates: start: 20110911, end: 20110911
  4. TYLENOL [Suspect]
     Active Substance: ACETAMINOPHEN
     Dosage: 10000 MG, (20 TABLETS OF 500 MG) SINGLE
     Route: 048
     Dates: start: 20110911, end: 20110911
  5. ATORVASTATIN CALCIUM. [Suspect]
     Active Substance: ATORVASTATIN CALCIUM
     Dosage: 20 MG, 1X/DAY
     Route: 048
     Dates: start: 20101209, end: 20110517
  6. CHLORPHENIRAMINE. [Suspect]
     Active Substance: CHLORPHENIRAMINE
     Dosage: 20 MG, (10 TABLETS OF 2 MG) SINGLE
     Route: 048
     Dates: start: 20110911, end: 20110911
  7. ATORVASTATIN CALCIUM. [Suspect]
     Active Substance: ATORVASTATIN CALCIUM
     Indication: TYPE IIA HYPERLIPIDAEMIA
     Dosage: 10 MG, 1X/DAY
     Route: 048
     Dates: start: 20090526, end: 20101208
  8. ATORVASTATIN CALCIUM. [Suspect]
     Active Substance: ATORVASTATIN CALCIUM
     Dosage: 40 MG, 1X/DAY
     Route: 048
     Dates: start: 20110518, end: 20110911
  9. ADVIL [Suspect]
     Active Substance: IBUPROFEN
     Dosage: 14400 MG, (72 TABLETS OF 200 MG) SINGLE
     Route: 048
     Dates: start: 20110911, end: 20110911

REACTIONS (1)
  - Suicide attempt [Recovered/Resolved]

NARRATIVE: CASE EVENT DATE: 20110911
